FAERS Safety Report 6638982-X (Version None)
Quarter: 2010Q1

REPORT INFORMATION
  Report Type: 
  Country: None (occurrence: None)
  Receive Date: 20100317
  Receipt Date: 20100309
  Transmission Date: 20100710
  Serious: Yes (Other)
  Sender: FDA-Public Use
  Company Number: JP-ASTRAZENECA-2010SE11016

PATIENT
  Age: 77 Year
  Sex: Male
  Weight: 82 kg

DRUGS (1)
  1. AMIAS [Suspect]
     Indication: CARDIAC FAILURE
     Route: 048
     Dates: start: 20091228, end: 20100225

REACTIONS (2)
  - ABDOMINAL PAIN [None]
  - CONSTIPATION [None]
